FAERS Safety Report 7358076-8 (Version None)
Quarter: 2011Q1

REPORT INFORMATION
  Report Type: 
  Country: None (occurrence: None)
  Receive Date: 20110317
  Receipt Date: 20110304
  Transmission Date: 20110831
  Serious: Yes (Other)
  Sender: FDA-Public Use
  Company Number: PHHY2010DE40697

PATIENT
  Sex: Female

DRUGS (3)
  1. AFINITOR [Suspect]
     Route: 048
  2. AFINITOR [Suspect]
     Indication: RENAL CELL CARCINOMA
     Dosage: 10 MG, DAILY
     Route: 048
     Dates: start: 20100430, end: 20100617
  3. DIURETICS [Suspect]

REACTIONS (1)
  - HYPONATRAEMIA [None]
